FAERS Safety Report 8340006-3 (Version None)
Quarter: 2012Q2

REPORT INFORMATION
  Report Type: 
  Country: None (occurrence: None)
  Receive Date: 20120507
  Receipt Date: 20120502
  Transmission Date: 20120825
  Serious: Yes (Other)
  Sender: FDA-Public Use
  Company Number: US-PFIZER INC-2012042759

PATIENT
  Sex: Female

DRUGS (3)
  1. HALCION [Suspect]
     Dosage: UNK
     Route: 048
  2. INSULIN [Concomitant]
     Indication: DIABETES MELLITUS
     Dosage: UNK
  3. HALCION [Suspect]
     Indication: SLEEP DISORDER
     Dosage: 0.25 MG, 1X/DAY
     Route: 048

REACTIONS (5)
  - SURGERY [None]
  - ARTERIAL STENT INSERTION [None]
  - FIBROMYALGIA [None]
  - BREAST CANCER [None]
  - HYPERTONIC BLADDER [None]
